FAERS Safety Report 8029141-7 (Version None)
Quarter: 2012Q1

REPORT INFORMATION
  Report Type: 
  Country: None (occurrence: None)
  Receive Date: 20120106
  Receipt Date: 20120102
  Transmission Date: 20120608
  Serious: Yes (Hospitalization)
  Sender: FDA-Public Use
  Company Number: PHHY2012FR000872

PATIENT
  Sex: Male

DRUGS (3)
  1. LAMICTAL [Concomitant]
     Indication: EPILEPSY
     Dosage: UNK UKN, UNK
  2. TRILEPTAL [Suspect]
     Indication: EPILEPSY
     Dosage: UNK UKN, UNK
     Dates: start: 20080101
  3. URBANYL [Concomitant]
     Indication: EPILEPSY
     Dosage: UNK UKN, UNK

REACTIONS (3)
  - BACK PAIN [None]
  - STATUS EPILEPTICUS [None]
  - CHOLANGITIS [None]
